FAERS Safety Report 6056633-2 (Version None)
Quarter: 2009Q1

REPORT INFORMATION
  Report Type: 
  Country: None (occurrence: None)
  Receive Date: 20090126
  Receipt Date: 20090126
  Transmission Date: 20090719
  Serious: No
  Sender: FDA-Public Use
  Company Number: None

PATIENT
  Age: 80 Year
  Sex: Female

DRUGS (1)
  1. TIMOPTIC-XE [Suspect]
     Indication: GLAUCOMA
     Dosage: 1 DROP IN EACH EYE 1 DAILY SUMER 2008
     Dates: start: 20080101

REACTIONS (1)
  - DIZZINESS [None]
